FAERS Safety Report 8887436 (Version 1)
Quarter: 2012Q4

REPORT INFORMATION
  Report Type: Spontaneous
  Country: US (occurrence: None)
  Receive Date: 20121101
  Receipt Date: 20121101
  Transmission Date: 20130627
  Serious: Yes (Hospitalization)
  Sender: FDA-Public Use
  Company Number: None

PATIENT
  Age: 58 Year
  Sex: Male
  Weight: 95.26 kg

DRUGS (2)
  1. GABAPENTIN [Suspect]
     Indication: BACK PAIN
     Dosage: one capsule  three times daily  oral
     Route: 048
     Dates: start: 201206, end: 201207
  2. GABAPENTIN [Suspect]
     Indication: BACK PAIN
     Dosage: Lowered dosage to 2-daily  oral
     Route: 048

REACTIONS (5)
  - Blood glucose increased [None]
  - Blood triglycerides increased [None]
  - Confusional state [None]
  - Fatigue [None]
  - Depression [None]
